FAERS Safety Report 7315601-0 (Version None)
Quarter: 2011Q1

REPORT INFORMATION
  Report Type: 
  Country: None (occurrence: None)
  Receive Date: 20110225
  Receipt Date: 20110221
  Transmission Date: 20110831
  Serious: Yes (Other)
  Sender: FDA-Public Use
  Company Number: ES-BRISTOL-MYERS SQUIBB COMPANY-15562382

PATIENT
  Age: 67 Year
  Sex: Male
  Weight: 70 kg

DRUGS (3)
  1. NECITUMUMAB [Suspect]
     Indication: NON-SMALL CELL LUNG CANCER
     Dosage: LIQUID, LAST RECEIVED ON 25JAN2011 (10TH INF)
     Route: 065
     Dates: start: 20101022, end: 20110125
  2. CISPLATIN [Suspect]
     Indication: NON-SMALL CELL LUNG CANCER
     Dosage: LAST RECEIVED ON 18JAN2011 (5TH INF)
     Route: 065
     Dates: start: 20101022, end: 20110118
  3. ALIMTA [Suspect]
     Indication: NON-SMALL CELL LUNG CANCER
     Dosage: VIAL;LAST RECEIVED ON 18JAN2011 (5TH INF)
     Route: 065
     Dates: start: 20101022, end: 20110118

REACTIONS (1)
  - PERIPHERAL ISCHAEMIA [None]
